FAERS Safety Report 10081541 (Version 1)
Quarter: 2014Q2

REPORT INFORMATION
  Report Type: Spontaneous
  Country: US (occurrence: None)
  Receive Date: 20140415
  Receipt Date: 20140415
  Transmission Date: 20141212
  Serious: Yes (Hospitalization)
  Sender: FDA-Public Use
  Company Number: None

PATIENT
  Age: 26 Year
  Sex: Male
  Weight: 104.33 kg

DRUGS (1)
  1. CARBAMAZEPINE [Suspect]
     Indication: SCHIZOAFFECTIVE DISORDER
     Dosage: NULL
     Route: 048

REACTIONS (1)
  - Drug reaction with eosinophilia and systemic symptoms [None]
